FAERS Safety Report 5152242-8 (Version None)
Quarter: 2006Q4

REPORT INFORMATION
  Report Type: 
  Country: None (occurrence: None)
  Receive Date: 20061116
  Receipt Date: 20060622
  Transmission Date: 20070319
  Serious: Yes (Hospitalization, Other)
  Sender: FDA-Public Use
  Company Number: PHNU2006DE02344

PATIENT
  Age: 53 Year
  Sex: Female
  Weight: 80 kg

DRUGS (10)
  1. ZOMETA [Suspect]
     Indication: METASTASES TO BONE
     Dosage: 4 MG, QMO
     Route: 042
     Dates: start: 20020326, end: 20060601
  2. TAXOTERE [Concomitant]
     Indication: METASTATIC NEOPLASM
     Route: 065
     Dates: start: 20020501, end: 20020801
  3. TAXOTERE [Concomitant]
     Route: 065
     Dates: start: 20040601, end: 20040901
  4. TAXOTERE [Concomitant]
     Route: 065
     Dates: start: 20050301, end: 20050501
  5. CARBOPLATIN [Concomitant]
     Indication: METASTATIC NEOPLASM
     Route: 065
     Dates: start: 20020501, end: 20020801
  6. CARBOPLATIN [Concomitant]
     Route: 065
     Dates: start: 20040601, end: 20040901
  7. CARBOPLATIN [Concomitant]
     Route: 065
     Dates: start: 20050301, end: 20050501
  8. VINORELBINE [Concomitant]
     Indication: METASTATIC NEOPLASM
     Route: 065
     Dates: start: 20050601, end: 20050801
  9. VINORELBINE [Concomitant]
     Route: 065
     Dates: start: 20051201, end: 20060301
  10. GEMZAR [Concomitant]
     Indication: METASTATIC NEOPLASM
     Route: 065
     Dates: start: 20060401, end: 20060601

REACTIONS (2)
  - OSTEONECROSIS [None]
  - X-RAY DENTAL [None]
